FAERS Safety Report 15951880 (Version 2)
Quarter: 2019Q1

REPORT INFORMATION
  Report Type: Spontaneous
  Country: US (occurrence: US)
  Receive Date: 20190212
  Receipt Date: 20190219
  Transmission Date: 20190417
  Serious: Yes (Other)
  Sender: FDA-Public Use
  Company Number: US-PFIZER INC-2019059725

PATIENT
  Age: 42 Year
  Sex: Male
  Weight: 81.65 kg

DRUGS (1)
  1. VIAGRA [Suspect]
     Active Substance: SILDENAFIL CITRATE
     Dosage: UNK

REACTIONS (7)
  - Blood pressure increased [Unknown]
  - Eye disorder [Unknown]
  - Eye irritation [Unknown]
  - Dizziness [Unknown]
  - Visual impairment [Unknown]
  - Cataract [Unknown]
  - Blood pressure abnormal [Unknown]
